FAERS Safety Report 16922813 (Version 1)
Quarter: 2019Q4

REPORT INFORMATION
  Report Type: Spontaneous
  Country: HU (occurrence: HU)
  Receive Date: 20191016
  Receipt Date: 20191016
  Transmission Date: 20200122
  Serious: Yes (Hospitalization, Other)
  Sender: FDA-Public Use
  Company Number: HU-TEVA-2019-HU-1121290

PATIENT
  Age: 52 Year
  Sex: Female

DRUGS (1)
  1. COPAXONE [Suspect]
     Active Substance: GLATIRAMER ACETATE
     Indication: MULTIPLE SCLEROSIS
     Dosage: 1 DOSAGE FORM  40 MG  THREE TIMES A WEEK. THE DATE OF DRUG ADMINISTRATION IS 14/09/2019, WHICH WAS F
     Route: 058
     Dates: start: 20140314, end: 20190919

REACTIONS (1)
  - Embolia cutis medicamentosa [Recovering/Resolving]

NARRATIVE: CASE EVENT DATE: 20190914
